FAERS Safety Report 19001662 (Version 2)
Quarter: 2021Q3

REPORT INFORMATION
  Report Type: Spontaneous
  Country: US (occurrence: US)
  Receive Date: 20210312
  Receipt Date: 20210908
  Transmission Date: 20211014
  Serious: No
  Sender: FDA-Public Use
  Company Number: US-FARMAPROD-202011-1557

PATIENT
  Age: 80 Year
  Sex: Female

DRUGS (6)
  1. LOTEMAX [Concomitant]
     Active Substance: LOTEPREDNOL ETABONATE
  2. METOPROLOL/HYDROCHLOROTHIAZIDE [Concomitant]
     Active Substance: HYDROCHLOROTHIAZIDE\METOPROLOL
  3. PLAVIX [Concomitant]
     Active Substance: CLOPIDOGREL BISULFATE
  4. HYDROCHLOROTHIAZIDE. [Concomitant]
     Active Substance: HYDROCHLOROTHIAZIDE
  5. VIGAMOX [Concomitant]
     Active Substance: MOXIFLOXACIN HYDROCHLORIDE
  6. OXERVATE [Suspect]
     Active Substance: CENEGERMIN-BKBJ
     Indication: NEUROTROPHIC KERATOPATHY
     Route: 047
     Dates: start: 20201103, end: 20201110

REACTIONS (5)
  - Eye swelling [Recovered/Resolved]
  - Eye pain [Recovered/Resolved]
  - Vision blurred [Unknown]
  - Eye irritation [Recovered/Resolved]
  - Ocular hyperaemia [Recovered/Resolved]

NARRATIVE: CASE EVENT DATE: 20201104
